FAERS Safety Report 10966769 (Version 1)
Quarter: 2015Q1

REPORT INFORMATION
  Report Type: Spontaneous
  Country: CR (occurrence: CR)
  Receive Date: 20150330
  Receipt Date: 20150330
  Transmission Date: 20150721
  Serious: Yes (Other)
  Sender: FDA-Public Use
  Company Number: CR-BAYER-2014-120914

PATIENT
  Age: 23 Year
  Sex: Male

DRUGS (1)
  1. NEXAVAR [Suspect]
     Active Substance: SORAFENIB
     Indication: OSTEOSARCOMA
     Route: 048

REACTIONS (2)
  - Osteosarcoma [Not Recovered/Not Resolved]
  - Product use issue [None]
